FAERS Safety Report 22180882 (Version 1)
Quarter: 2023Q2

REPORT INFORMATION
  Report Type: Spontaneous
  Country: US (occurrence: US)
  Receive Date: 20230406
  Receipt Date: 20230406
  Transmission Date: 20230722
  Serious: No
  Sender: FDA-Public Use
  Company Number: US-BAYER-2023A041654

PATIENT
  Age: 45 Year
  Sex: Female

DRUGS (2)
  1. BETASERON [Suspect]
     Active Substance: INTERFERON BETA-1B
  2. KESIMPTA [Concomitant]
     Active Substance: OFATUMUMAB
     Indication: Multiple sclerosis

REACTIONS (1)
  - Drug hypersensitivity [None]
